FAERS Safety Report 22912776 (Version 6)
Quarter: 2025Q2

REPORT INFORMATION
  Report Type: Spontaneous
  Country: IN (occurrence: IN)
  Receive Date: 20230906
  Receipt Date: 20250529
  Transmission Date: 20250716
  Serious: Yes (Death, Other)
  Sender: PFIZER
  Company Number: IN-PFIZER INC-PV202200098345

PATIENT
  Age: 56 Year
  Sex: Female
  Weight: 68 kg

DRUGS (13)
  1. DACOMITINIB [Suspect]
     Active Substance: DACOMITINIB
     Indication: Non-small cell lung cancer
     Dosage: 30 MG, 1X/DAY 1HR BEFORE MEAL
     Route: 048
     Dates: start: 202210
  2. DACOMITINIB [Suspect]
     Active Substance: DACOMITINIB
     Route: 048
     Dates: start: 202211
  3. DOXYCYCLINE [Concomitant]
     Active Substance: DOXYCYCLINE
     Dosage: 100 MG, 1X/DAY
  4. MEGEETRON [Concomitant]
     Dosage: 160 MG, 1X/DAY
  5. DOXYCYCLINE [Concomitant]
     Active Substance: DOXYCYCLINE
     Dates: start: 202212
  6. PREGABALIN [Concomitant]
     Active Substance: PREGABALIN
     Dates: start: 202206
  7. HYDROCORTISONE [Concomitant]
     Active Substance: HYDROCORTISONE
     Indication: Rash
     Route: 061
  8. LOPERAMIDE HYDROCHLORIDE [Concomitant]
     Active Substance: LOPERAMIDE HYDROCHLORIDE
     Indication: Diarrhoea
  9. RANITIDINE HYDROCHLORIDE [Concomitant]
     Active Substance: RANITIDINE HYDROCHLORIDE
     Dosage: 150 MG, 2X/DAY
  10. COREX [Concomitant]
     Indication: Cough
  11. MEGEETRON [Concomitant]
     Dosage: 160 MG, 1X/DAY
  12. PYRIGESIC [Concomitant]
     Indication: Pain
  13. LYRICA [Concomitant]
     Active Substance: PREGABALIN
     Dosage: 75 MG, 1X/DAY AT BEDTIME

REACTIONS (9)
  - Cardiopulmonary failure [Fatal]
  - Carcinoembryonic antigen increased [Unknown]
  - Non-small cell lung cancer [Unknown]
  - Malignant neoplasm progression [Unknown]
  - Mucosal inflammation [Unknown]
  - Muscular weakness [Unknown]
  - Rash [Unknown]
  - Skin disorder [Not Recovered/Not Resolved]
  - Decreased appetite [Not Recovered/Not Resolved]

NARRATIVE: CASE EVENT DATE: 20221201
